FAERS Safety Report 4751336-6 (Version None)
Quarter: 2005Q3

REPORT INFORMATION
  Report Type: 
  Country: None (occurrence: None)
  Receive Date: 20050824
  Receipt Date: 20050811
  Transmission Date: 20060218
  Serious: Yes (Hospitalization)
  Sender: FDA-Public Use
  Company Number: FR-GILEAD-2005-0008628

PATIENT
  Age: 46 Year
  Sex: Male

DRUGS (5)
  1. HEPSERA [Suspect]
     Indication: HEPATITIS B
     Route: 048
     Dates: start: 20030516
  2. ZIAGEN [Concomitant]
     Dates: start: 19991015
  3. ATAZANAVIR [Concomitant]
     Dates: start: 20040109
  4. EPIVIR [Concomitant]
     Dates: start: 20040402
  5. NORVIR [Concomitant]
     Dates: start: 20040402

REACTIONS (2)
  - FANCONI SYNDROME ACQUIRED [None]
  - GLOMERULAR FILTRATION RATE DECREASED [None]
